FAERS Safety Report 5002747-5 (Version None)
Quarter: 2006Q2

REPORT INFORMATION
  Report Type: 
  Country: None (occurrence: None)
  Receive Date: 20060512
  Receipt Date: 20060505
  Transmission Date: 20061013
  Serious: Yes (Other)
  Sender: FDA-Public Use
  Company Number: 2006060613

PATIENT
  Age: 74 Year
  Sex: Male

DRUGS (2)
  1. DILANTIN [Suspect]
     Indication: ILL-DEFINED DISORDER
  2. TRILEPTAL [Suspect]
     Indication: CONVULSION

REACTIONS (3)
  - CONVULSION [None]
  - FEELING ABNORMAL [None]
  - SOMNOLENCE [None]
